FAERS Safety Report 7320593-4 (Version None)
Quarter: 2011Q1

REPORT INFORMATION
  Report Type: 
  Country: None (occurrence: None)
  Receive Date: 20110215
  Receipt Date: 20110203
  Transmission Date: 20110831
  Serious: Yes (Hospitalization)
  Sender: FDA-Public Use
  Company Number: 1000017706

PATIENT
  Age: 36 Year
  Sex: Male

DRUGS (7)
  1. DIAZEPAM (DIAZEPAM) (TABLETS) (DIAZEPAM) [Concomitant]
  2. ESCITALOPRAM [Suspect]
     Indication: ANXIETY
     Dosage: 40 MG (20 MG,2 IN 1 D), ORAL
     Route: 048
  3. LEVETIRACETAM (LEVETIRACETAM) (TABLETS) (LEVETIRACETAM) [Concomitant]
  4. ATORVASTATIN (ATORVASTATIN) (TABLETS) (ATORVASTATIN) [Concomitant]
  5. OLANZAPINE (OLANZAPINE) (TABLETS) (OLANZAPINE) [Concomitant]
  6. FLUANXOL DEPOT INJECTION (FLUPENTIXOL) (INJECTION) [Suspect]
     Indication: SCHIZOPHRENIA
     Dosage: (40 MG, 1 IN 4 C), INTRAMUSCULAR
     Route: 030
     Dates: start: 20100815, end: 20100815
  7. METFORMIN (METFORMIN) (TABLETS) (METFORMIN) [Concomitant]

REACTIONS (13)
  - EPILEPSY [None]
  - LOSS OF CONSCIOUSNESS [None]
  - DRUG INEFFECTIVE [None]
  - INTENTIONAL DRUG MISUSE [None]
  - DRUG INTERACTION [None]
  - OVERDOSE [None]
  - TREMOR [None]
  - CONVULSION [None]
  - EXCESSIVE EYE BLINKING [None]
  - TOXICITY TO VARIOUS AGENTS [None]
  - MUSCLE RIGIDITY [None]
  - BODY TEMPERATURE FLUCTUATION [None]
  - EPISTAXIS [None]
